FAERS Safety Report 5355330-6 (Version None)
Quarter: 2007Q2

REPORT INFORMATION
  Report Type: 
  Country: None (occurrence: None)
  Receive Date: 20070601
  Receipt Date: 20070426
  Transmission Date: 20071010
  Serious: No
  Sender: FDA-Public Use
  Company Number: S07-USA-01771-01

PATIENT
  Age: 55 Year
  Sex: Male

DRUGS (4)
  1. CAMPRAL [Suspect]
     Indication: ALCOHOLISM
     Dosage: 666 MG TID PO
     Route: 048
     Dates: start: 20070419
  2. WELLBUTRIN [Suspect]
     Indication: ANXIETY
     Dosage: 300 MG QD
     Dates: start: 20070419
  3. WELLBUTRIN [Suspect]
     Indication: DEPRESSION
     Dosage: 300 MG QD
     Dates: start: 20070419
  4. SYNTHROID [Concomitant]

REACTIONS (1)
  - BLOOD PRESSURE INCREASED [None]
